APPROVED DRUG PRODUCT: TERIPARATIDE
Active Ingredient: TERIPARATIDE
Strength: 0.56MG/2.24ML (0.25MG/ML)
Dosage Form/Route: SOLUTION;SUBCUTANEOUS
Application: A213641 | Product #001 | TE Code: AP
Applicant: AMPHASTAR PHARMACEUTICALS INC
Approved: Dec 12, 2025 | RLD: No | RS: No | Type: RX